FAERS Safety Report 6826139-9 (Version None)
Quarter: 2010Q3

REPORT INFORMATION
  Report Type: 
  Country: None (occurrence: None)
  Receive Date: 20100709
  Receipt Date: 20100709
  Transmission Date: 20110219
  Serious: Yes (Hospitalization)
  Sender: FDA-Public Use
  Company Number: JP-BAYER-201012734BYL

PATIENT
  Age: 74 Year
  Sex: Male
  Weight: 58 kg

DRUGS (9)
  1. NEXAVAR [Suspect]
     Indication: HEPATIC NEOPLASM MALIGNANT
     Dosage: TOTAL DAILY DOSE: 800 MG  UNIT DOSE: 200 MG
     Route: 048
     Dates: start: 20100514, end: 20100521
  2. NEXAVAR [Suspect]
     Dosage: TOTAL DAILY DOSE: 800 MG  UNIT DOSE: 200 MG
     Route: 048
     Dates: start: 20100618
  3. AMLODIPINE BESYLATE [Concomitant]
     Indication: HYPERTENSION
     Dosage: TOTAL DAILY DOSE: 5 MG
     Route: 048
     Dates: start: 20100430, end: 20100507
  4. AMLODIPINE BESYLATE [Concomitant]
     Dosage: TOTAL DAILY DOSE: 10 MG
     Route: 048
     Dates: start: 20100508
  5. ROSUVASTATIN CALCIUM [Concomitant]
     Dosage: TOTAL DAILY DOSE: 5 MG
     Route: 048
     Dates: start: 20100508, end: 20100518
  6. OLMESARTAN MEDOXOMIL [Concomitant]
     Indication: HYPERTENSION
     Dosage: TOTAL DAILY DOSE: 20 MG
     Route: 048
     Dates: start: 20100508
  7. LACTOBACILLUS CASEI [Concomitant]
     Dosage: TOTAL DAILY DOSE: 3 MG
     Route: 065
     Dates: start: 20100514, end: 20100518
  8. REBAMIPIDE [Concomitant]
     Dosage: TOTAL DAILY DOSE: 300 MG
     Route: 048
     Dates: start: 20100514, end: 20100518
  9. UREA [Concomitant]
     Indication: PROPHYLAXIS
     Dosage: AS REQUIRED
     Route: 061
     Dates: start: 20100514

REACTIONS (4)
  - DECREASED APPETITE [None]
  - GASTRIC ULCER [None]
  - NAUSEA [None]
  - VOMITING [None]
